FAERS Safety Report 23795843 (Version 4)
Quarter: 2025Q1

REPORT INFORMATION
  Report Type: Spontaneous
  Country: JP (occurrence: JP)
  Receive Date: 20240429
  Receipt Date: 20250201
  Transmission Date: 20250409
  Serious: Yes (Death, Life-Threatening, Other)
  Sender: MERCK
  Company Number: JP-MSD-2404JPN002977J

PATIENT
  Age: 77 Year
  Sex: Male
  Weight: 54 kg

DRUGS (3)
  1. KEYTRUDA [Suspect]
     Active Substance: PEMBROLIZUMAB
     Indication: Oesophageal squamous cell carcinoma stage IV
     Dosage: 200 MILLIGRAM, Q3W
     Route: 041
  2. FLUOROURACIL [Concomitant]
     Active Substance: FLUOROURACIL
     Indication: Oesophageal squamous cell carcinoma stage IV
     Dosage: 800 MILLIGRAM/SQ. METER, QD
     Route: 065
  3. CISPLATIN [Concomitant]
     Active Substance: CISPLATIN
     Indication: Oesophageal squamous cell carcinoma stage IV
     Dosage: 80 MILLIGRAM/SQ. METER, Q3W
     Route: 041

REACTIONS (3)
  - Small intestinal obstruction [Not Recovered/Not Resolved]
  - Device dislocation [Not Recovered/Not Resolved]
  - Pneumonia aspiration [Fatal]
